FAERS Safety Report 18395822 (Version 3)
Quarter: 2020Q4

REPORT INFORMATION
  Report Type: Spontaneous
  Country: US (occurrence: US)
  Receive Date: 20201018
  Receipt Date: 20201023
  Transmission Date: 20210114
  Serious: Yes (Other)
  Sender: FDA-Public Use
  Company Number: US-AMGEN-USASP2020166930

PATIENT
  Age: 2 Year
  Sex: Female

DRUGS (1)
  1. PROLIA [Suspect]
     Active Substance: DENOSUMAB
     Indication: OSTEOGENESIS IMPERFECTA
     Dosage: 60 MILLIGRAM, Q6MO
     Route: 065
     Dates: start: 2016

REACTIONS (3)
  - Off label use [Unknown]
  - Fracture [Unknown]
  - Product storage error [Unknown]

NARRATIVE: CASE EVENT DATE: 2016
